FAERS Safety Report 20782039 (Version 4)
Quarter: 2022Q3

REPORT INFORMATION
  Report Type: Spontaneous
  Country: US (occurrence: US)
  Receive Date: 20220504
  Receipt Date: 20220920
  Transmission Date: 20221026
  Serious: No
  Sender: FDA-Public Use
  Company Number: US-KARYOPHARM-2022KPT000478

PATIENT

DRUGS (4)
  1. XPOVIO [Suspect]
     Active Substance: SELINEXOR
     Indication: Plasma cell myeloma
     Dosage: 80 MG, 2X/WEEK
     Route: 048
     Dates: start: 20220411, end: 2022
  2. XPOVIO [Suspect]
     Active Substance: SELINEXOR
     Dosage: 40 MG, 2X/WEEK ON MONDAYS AND WEDNESDAYS
     Route: 048
     Dates: start: 2022, end: 202205
  3. XPOVIO [Suspect]
     Active Substance: SELINEXOR
     Dosage: 20 MG, 2X/WEEK ON MONDAYS AND WEDNESDAYS
     Route: 048
     Dates: start: 2022, end: 2022
  4. XPOVIO [Suspect]
     Active Substance: SELINEXOR
     Dosage: 60 MG, 2X/WEEK
     Route: 048
     Dates: start: 2022

REACTIONS (7)
  - Abdominal discomfort [Unknown]
  - Oropharyngeal pain [Recovering/Resolving]
  - Full blood count decreased [Recovering/Resolving]
  - Hypotension [Unknown]
  - Hypertension [Unknown]
  - Taste disorder [Unknown]
  - Platelet count decreased [Unknown]

NARRATIVE: CASE EVENT DATE: 20220101
